FAERS Safety Report 16833461 (Version 4)
Quarter: 2019Q4

REPORT INFORMATION
  Report Type: Spontaneous
  Country: JP (occurrence: JP)
  Receive Date: 20190920
  Receipt Date: 20191018
  Transmission Date: 20200122
  Serious: Yes (Life-Threatening, Hospitalization, Other)
  Sender: FDA-Public Use
  Company Number: JP-CELGENEUS-JPN-20190902132

PATIENT
  Age: 42 Year
  Sex: Female

DRUGS (6)
  1. DEXAMETHASONE. [Suspect]
     Active Substance: DEXAMETHASONE
     Dosage: UNKNOWN
     Route: 048
     Dates: start: 20190611, end: 20190624
  2. VELCADE [Suspect]
     Active Substance: BORTEZOMIB
     Dosage: UNKNOWN
     Route: 065
     Dates: start: 20190611, end: 20190624
  3. DEXAMETHASONE. [Suspect]
     Active Substance: DEXAMETHASONE
     Indication: PLASMA CELL MYELOMA
     Dosage: HIGH DOSE
     Route: 048
     Dates: start: 20190514, end: 201905
  4. REVLIMID [Suspect]
     Active Substance: LENALIDOMIDE
     Indication: PLASMA CELL MYELOMA
     Dosage: UNKNOWN
     Route: 048
     Dates: start: 20190611, end: 20190624
  5. DEXAMETHASONE. [Suspect]
     Active Substance: DEXAMETHASONE
     Dosage: UNKNOWN
     Route: 048
     Dates: start: 20190520, end: 2019
  6. VELCADE [Suspect]
     Active Substance: BORTEZOMIB
     Indication: PLASMA CELL MYELOMA
     Dosage: UNKNOWN
     Route: 065
     Dates: start: 20190520, end: 2019

REACTIONS (15)
  - Neuropathy peripheral [Not Recovered/Not Resolved]
  - Oedema peripheral [Recovering/Resolving]
  - Affect lability [Recovering/Resolving]
  - Anaemia [Not Recovered/Not Resolved]
  - Cytomegalovirus test positive [Recovered/Resolved]
  - Aspergillus test [Recovered/Resolved]
  - Taste disorder [Not Recovered/Not Resolved]
  - Hypogonadism [Not Recovered/Not Resolved]
  - Blood albumin decreased [Not Recovered/Not Resolved]
  - Decreased appetite [Not Recovered/Not Resolved]
  - Hypophagia [Not Recovered/Not Resolved]
  - Depression [Recovering/Resolving]
  - Enterocolitis [Not Recovered/Not Resolved]
  - Ileus paralytic [Not Recovered/Not Resolved]
  - Blood beta-D-glucan increased [Recovered/Resolved]

NARRATIVE: CASE EVENT DATE: 2019
